FAERS Safety Report 9148456 (Version 1)
Quarter: 2013Q1

REPORT INFORMATION
  Report Type: Spontaneous
  Country: US (occurrence: None)
  Receive Date: 20130228
  Receipt Date: 20130228
  Transmission Date: 20140127
  Serious: Yes (Other)
  Sender: FDA-Public Use
  Company Number: None

PATIENT
  Age: 81 Year
  Sex: Male
  Weight: 85 kg

DRUGS (1)
  1. ERTAPENEM [Suspect]
     Indication: PNEUMONIA ASPIRATION
     Dates: start: 20130202, end: 20130208

REACTIONS (1)
  - Hyperkalaemia [None]
